FAERS Safety Report 15776400 (Version 1)
Quarter: 2018Q4

REPORT INFORMATION
  Report Type: Spontaneous
  Country: CA (occurrence: CA)
  Receive Date: 20181231
  Receipt Date: 20181231
  Transmission Date: 20190205
  Serious: Yes (Other)
  Sender: FDA-Public Use
  Company Number: CA-BAYER-2018-242492

PATIENT
  Age: 63 Year
  Sex: Female

DRUGS (20)
  1. ARAVA [Suspect]
     Active Substance: LEFLUNOMIDE
     Dosage: 20 MG, QD
  2. ASCORBIC ACID. [Suspect]
     Active Substance: ASCORBIC ACID
  3. METHOTREXATE. [Suspect]
     Active Substance: METHOTREXATE
     Dosage: 20 MG, OW
  4. NAPROXEN SODIUM ({=220 MG) [Suspect]
     Active Substance: NAPROXEN SODIUM
     Dosage: 100 MG, QD
     Route: 048
  5. ADALIMUMAB [Suspect]
     Active Substance: ADALIMUMAB
     Route: 058
  6. HYDROXYCHLOROQUINE SULFATE. [Suspect]
     Active Substance: HYDROXYCHLOROQUINE SULFATE
     Dosage: 40 MG
  7. ORENCIA [Suspect]
     Active Substance: ABATACEPT
  8. CELEBREX [Concomitant]
     Active Substance: CELECOXIB
     Dosage: 200 MG, QD
  9. METHOTREXATE. [Suspect]
     Active Substance: METHOTREXATE
     Dosage: 25 MG
     Route: 048
  10. METHOTREXATE. [Suspect]
     Active Substance: METHOTREXATE
     Dosage: 25 MG, OW
  11. NAPROSYN [Suspect]
     Active Substance: NAPROXEN
     Dosage: 1000 MG, QD
  12. NAPROXEN SODIUM ({=220 MG) [Suspect]
     Active Substance: NAPROXEN SODIUM
     Dosage: 500 MG, BID
     Route: 048
  13. CO ATENOLOL [Suspect]
     Active Substance: ATENOLOL
     Dosage: 25 MG, QD
  14. FOLIC ACID. [Suspect]
     Active Substance: FOLIC ACID
     Dosage: 5 MG, BID
  15. HUMIRA [Suspect]
     Active Substance: ADALIMUMAB
     Route: 058
  16. ENBREL [Suspect]
     Active Substance: ETANERCEPT
     Route: 058
  17. NAPROSYN [Suspect]
     Active Substance: NAPROXEN
     Dosage: 500 MG, BID
  18. FERROUS FUMARATE [Suspect]
     Active Substance: FERROUS FUMARATE
  19. LEFLUNOMIDE. [Suspect]
     Active Substance: LEFLUNOMIDE
     Dosage: 20 MG, QD
     Route: 048
  20. PALAFER CF [Suspect]
     Active Substance: ASCORBIC ACID\FERROUS FUMARATE\FOLIC ACID

REACTIONS (17)
  - Rash [None]
  - Rheumatoid arthritis [None]
  - Haemoglobin decreased [None]
  - Peripheral swelling [None]
  - Arthralgia [None]
  - C-reactive protein increased [None]
  - Drug ineffective [None]
  - Red blood cell count decreased [None]
  - Contraindicated product administered [None]
  - Haematocrit decreased [None]
  - C-reactive protein abnormal [None]
  - Condition aggravated [None]
  - Joint swelling [None]
  - Red blood cell sedimentation rate abnormal [None]
  - Disability [None]
  - Musculoskeletal pain [None]
  - Pain in extremity [None]
